FAERS Safety Report 7580406-2 (Version None)
Quarter: 2011Q2

REPORT INFORMATION
  Report Type: 
  Country: None (occurrence: None)
  Receive Date: 20110629
  Receipt Date: 20110620
  Transmission Date: 20111010
  Serious: Yes (Hospitalization, Other)
  Sender: FDA-Public Use
  Company Number: DE-JNJFOC-20110508725

PATIENT
  Sex: Female
  Weight: 61 kg

DRUGS (5)
  1. UNKNOWN MEDICATION [Suspect]
     Indication: PRODUCT USED FOR UNKNOWN INDICATION
     Route: 065
  2. RISPERDAL [Suspect]
     Indication: PRODUCT USED FOR UNKNOWN INDICATION
     Route: 048
  3. DOXEPIN [Suspect]
     Indication: PRODUCT USED FOR UNKNOWN INDICATION
     Route: 048
  4. FORADIL [Suspect]
     Indication: PRODUCT USED FOR UNKNOWN INDICATION
     Route: 055
  5. UNKNOWN MEDICATION [Suspect]
     Route: 048

REACTIONS (7)
  - MIOSIS [None]
  - SOMNOLENCE [None]
  - CHILLS [None]
  - SUICIDAL IDEATION [None]
  - HEADACHE [None]
  - SUICIDE ATTEMPT [None]
  - NAUSEA [None]
